FAERS Safety Report 15592683 (Version 1)
Quarter: 2018Q4

REPORT INFORMATION
  Report Type: Report from Study
  Country: GB (occurrence: GB)
  Receive Date: 20181107
  Receipt Date: 20181107
  Transmission Date: 20190205
  Serious: Yes (Hospitalization, Other)
  Sender: FDA-Public Use
  Company Number: GB-BRISTOL-MYERS SQUIBB COMPANY-BMS-2017-089663

PATIENT
  Sex: Female

DRUGS (3)
  1. LANSOPRAZOLE. [Concomitant]
     Active Substance: LANSOPRAZOLE
     Indication: PRODUCT USED FOR UNKNOWN INDICATION
     Route: 065
  2. LEVOTHYROXINE. [Concomitant]
     Active Substance: LEVOTHYROXINE
     Indication: PRODUCT USED FOR UNKNOWN INDICATION
     Dosage: 75 MG, UNK
     Route: 065
  3. ABATACEPT [Suspect]
     Active Substance: ABATACEPT
     Indication: RHEUMATOID ARTHRITIS
     Dosage: 125 MG, QWK
     Route: 058
     Dates: start: 20170912, end: 201807

REACTIONS (21)
  - Contusion [Unknown]
  - Peripheral swelling [Unknown]
  - Tremor [Unknown]
  - Malaise [Unknown]
  - Insomnia [Unknown]
  - Syncope [Unknown]
  - Night sweats [Unknown]
  - Pain [Unknown]
  - Mass [Unknown]
  - Hypoaesthesia [Unknown]
  - Burning sensation [Unknown]
  - Injection site haemorrhage [Unknown]
  - Dizziness [Unknown]
  - Myalgia [Unknown]
  - Drug ineffective [Unknown]
  - Skin disorder [Unknown]
  - Joint stiffness [Unknown]
  - Gait inability [Unknown]
  - Abdominal pain upper [Unknown]
  - Limb discomfort [Unknown]
  - Feeling abnormal [Unknown]
